FAERS Safety Report 9427753 (Version 1)
Quarter: 2013Q3

REPORT INFORMATION
  Report Type: Report from Study
  Country: US (occurrence: US)
  Receive Date: 20130730
  Receipt Date: 20130730
  Transmission Date: 20140515
  Serious: No
  Sender: FDA-Public Use
  Company Number: US-ABBOTT-12P-163-0989557-00

PATIENT
  Sex: Female

DRUGS (3)
  1. NIASPAN (COATED) [Suspect]
     Indication: BLOOD CHOLESTEROL INCREASED
     Dates: start: 20120821, end: 20120911
  2. NIASPAN (COATED) [Suspect]
     Dosage: AT BEDTIME
     Dates: start: 20120926
  3. COUMADIN [Concomitant]
     Indication: PRODUCT USED FOR UNKNOWN INDICATION

REACTIONS (11)
  - Lip swelling [Not Recovered/Not Resolved]
  - Diverticulitis [Not Recovered/Not Resolved]
  - Breast pain [Recovered/Resolved]
  - Breast tenderness [Not Recovered/Not Resolved]
  - Flushing [Recovered/Resolved]
  - Skin burning sensation [Recovered/Resolved]
  - Pruritus generalised [Recovered/Resolved]
  - Feeling hot [Recovered/Resolved]
  - Flushing [Not Recovered/Not Resolved]
  - Erythema [Not Recovered/Not Resolved]
  - Paraesthesia [Not Recovered/Not Resolved]
